FAERS Safety Report 13228462 (Version 1)
Quarter: 2017Q1

REPORT INFORMATION
  Report Type: Spontaneous
  Country: US (occurrence: US)
  Receive Date: 20170213
  Receipt Date: 20170213
  Transmission Date: 20170428
  Serious: Yes (Other)
  Sender: FDA-Public Use
  Company Number: US-ROCHE-1855189

PATIENT
  Age: 30 Year
  Sex: Male
  Weight: 89.5 kg

DRUGS (4)
  1. XOLAIR [Suspect]
     Active Substance: OMALIZUMAB
     Route: 058
     Dates: start: 201512
  2. XOLAIR [Suspect]
     Active Substance: OMALIZUMAB
     Route: 058
     Dates: start: 201409, end: 201412
  3. XOLAIR [Suspect]
     Active Substance: OMALIZUMAB
     Dosage: GRADED DOSE CHALLENGE: 50MG SUBCUTANEOUSLY 30 MINUTE OBSERVATION 325MG
     Route: 058
     Dates: end: 201601
  4. XOLAIR [Suspect]
     Active Substance: OMALIZUMAB
     Indication: ASTHMA
     Route: 058
     Dates: start: 201301, end: 201311

REACTIONS (4)
  - Injection site erythema [Unknown]
  - Type IV hypersensitivity reaction [Unknown]
  - Injection site rash [Unknown]
  - Injection site pruritus [Unknown]
